FAERS Safety Report 15648714 (Version 4)
Quarter: 2019Q1

REPORT INFORMATION
  Report Type: Spontaneous
  Country: FR (occurrence: FR)
  Receive Date: 20181122
  Receipt Date: 20190207
  Transmission Date: 20190417
  Serious: Yes (Death, Hospitalization, Other)
  Sender: FDA-Public Use
  Company Number: FR-BRISTOL-MYERS SQUIBB COMPANY-BMS-2018-108994

PATIENT
  Sex: Male
  Weight: 90 kg

DRUGS (15)
  1. LERCAN [Concomitant]
     Active Substance: LERCANIDIPINE
     Indication: HYPERTENSION
     Dosage: 20 MG, QD
     Route: 065
  2. TRAMADOL. [Concomitant]
     Active Substance: TRAMADOL
     Indication: PAIN
     Dosage: 4 DF, QD
     Route: 065
  3. LEXOMIL [Concomitant]
     Active Substance: BROMAZEPAM
     Indication: ANXIETY
     Dosage: 0.5 MG, QD, EVENING
     Route: 065
  4. ORGARAN [Suspect]
     Active Substance: DANAPAROID SODIUM
     Indication: PRODUCT USED FOR UNKNOWN INDICATION
     Dosage: UNK
     Route: 065
  5. FRAXODI [Suspect]
     Active Substance: NADROPARIN CALCIUM
     Indication: ARRHYTHMIA
     Route: 065
  6. ELIQUIS [Suspect]
     Active Substance: APIXABAN
     Indication: CEREBROVASCULAR ACCIDENT PROPHYLAXIS
     Dosage: 5 MG, BID, ONE IN THE MORNING AND ONE IN THE EVENING
     Route: 065
     Dates: end: 20181001
  7. ELIQUIS [Suspect]
     Active Substance: APIXABAN
     Indication: ANTICOAGULANT THERAPY
     Route: 065
  8. CANDESARTAN. [Concomitant]
     Active Substance: CANDESARTAN
     Indication: HYPERTENSION
     Dosage: 16 MG, QD
     Route: 065
  9. PARACETAMOL [Concomitant]
     Active Substance: ACETAMINOPHEN
     Indication: PAIN
     Dosage: UNK
     Route: 065
  10. FRAXODI [Suspect]
     Active Substance: NADROPARIN CALCIUM
     Indication: ANTICOAGULANT THERAPY
     Dosage: 0.6 ML, QD
     Route: 058
     Dates: start: 20181001
  11. FRAXODI [Suspect]
     Active Substance: NADROPARIN CALCIUM
     Indication: ATRIAL FIBRILLATION
     Dosage: UNK
     Route: 065
  12. ATARAX [Concomitant]
     Active Substance: HYDROXYZINE HYDROCHLORIDE
     Indication: ANXIETY
     Dosage: 25 MG, QD
     Route: 065
  13. PIASCLEDINE                        /01305801/ [Concomitant]
     Active Substance: AVOCADO OIL\SOYBEAN OIL
     Indication: PRODUCT USED FOR UNKNOWN INDICATION
     Dosage: UNK
     Route: 065
  14. HAVLANE [Concomitant]
     Active Substance: LOPRAZOLAM
     Indication: ANXIETY
     Dosage: 1 MG, QD, EVENING
     Route: 065
  15. FLUDEX                             /00340101/ [Concomitant]
     Active Substance: INDAPAMIDE
     Indication: HYPERTENSION
     Dosage: 1.5 MG, QD
     Route: 016

REACTIONS (3)
  - Heparin-induced thrombocytopenia [Fatal]
  - Contraindicated product administered [Unknown]
  - Pulmonary embolism [Fatal]

NARRATIVE: CASE EVENT DATE: 20181014
